FAERS Safety Report 6241670-5 (Version None)
Quarter: 2009Q2

REPORT INFORMATION
  Report Type: 
  Country: None (occurrence: None)
  Receive Date: 20090623
  Receipt Date: 20070621
  Transmission Date: 20091009
  Serious: Yes (Death, Other)
  Sender: FDA-Public Use
  Company Number: IT-ROCHE-637180

PATIENT

DRUGS (5)
  1. VALGANCICLOVIR HCL [Suspect]
     Dosage: INDUCTION THERAPY. TWO WEEKS DURATION
     Route: 048
  2. VALGANCICLOVIR HCL [Suspect]
     Dosage: MAINTENANCE THERAPY
     Route: 048
  3. FLUOROQUINOLONE [Concomitant]
     Route: 048
  4. ACYCLOVIR [Concomitant]
     Dosage: ROUTE: INTRAVENOUS OR ORAL
     Route: 065
  5. PENTAMIDINE ISETHIONATE [Concomitant]

REACTIONS (2)
  - CYTOMEGALOVIRUS INFECTION [None]
  - DEATH [None]
